FAERS Safety Report 9437844 (Version 1)
Quarter: 2013Q3

REPORT INFORMATION
  Report Type: Spontaneous
  Country: US (occurrence: US)
  Receive Date: 20130802
  Receipt Date: 20130802
  Transmission Date: 20140515
  Serious: Yes (Other)
  Sender: FDA-Public Use
  Company Number: US-BRISTOL-MYERS SQUIBB COMPANY-18700518

PATIENT
  Age: 72 Year
  Sex: Female
  Weight: 87.53 kg

DRUGS (3)
  1. WARFARIN SODIUM [Suspect]
  2. SYNTHROID [Concomitant]
  3. BYETTA [Concomitant]

REACTIONS (2)
  - Thrombosis [Unknown]
  - International normalised ratio fluctuation [Unknown]
